FAERS Safety Report 17923877 (Version 1)
Quarter: 2020Q2

REPORT INFORMATION
  Report Type: Spontaneous
  Country: US (occurrence: US)
  Receive Date: 20200622
  Receipt Date: 20200622
  Transmission Date: 20200714
  Serious: No
  Sender: FDA-Public Use
  Company Number: None

PATIENT
  Age: 51 Year
  Sex: Female
  Weight: 52.65 kg

DRUGS (7)
  1. AKYNZEO [Suspect]
     Active Substance: NETUPITANT\PALONOSETRON HYDROCHLORIDE
     Indication: CERVIX NEOPLASM
     Dates: start: 20190905, end: 20200622
  2. TRILEPTAL [Concomitant]
     Active Substance: OXCARBAZEPINE
  3. FENTANYL. [Concomitant]
     Active Substance: FENTANYL
  4. OXYCODONE [Concomitant]
     Active Substance: OXYCODONE
  5. ZYPREXA [Concomitant]
     Active Substance: OLANZAPINE
  6. DEXAMETHASONE. [Concomitant]
     Active Substance: DEXAMETHASONE
  7. SENOKOT [Concomitant]
     Active Substance: SENNOSIDES

REACTIONS (1)
  - Death [None]

NARRATIVE: CASE EVENT DATE: 20200622
